FAERS Safety Report 7928566-5 (Version None)
Quarter: 2011Q4

REPORT INFORMATION
  Report Type: 
  Country: None (occurrence: None)
  Receive Date: 20111118
  Receipt Date: 20111110
  Transmission Date: 20120403
  Serious: Yes (Other)
  Sender: FDA-Public Use
  Company Number: SE-ABBOTT-08P-150-0490606-01

PATIENT
  Sex: Male
  Weight: 130 kg

DRUGS (4)
  1. HUMIRA [Suspect]
     Indication: CROHN'S DISEASE
     Route: 058
     Dates: start: 20080904, end: 20081104
  2. CEFADROXIL [Concomitant]
     Indication: HIDRADENITIS
     Dates: start: 20081019, end: 20081028
  3. HUMIRA [Suspect]
     Route: 058
     Dates: start: 20081218
  4. ZOMIG [Concomitant]
     Indication: MIGRAINE
     Dates: start: 20030323

REACTIONS (1)
  - HIDRADENITIS [None]
